FAERS Safety Report 8152574-5 (Version None)
Quarter: 2012Q1

REPORT INFORMATION
  Report Type: 
  Country: None (occurrence: None)
  Receive Date: 20120221
  Receipt Date: 20120210
  Transmission Date: 20120608
  Serious: Yes (Hospitalization)
  Sender: FDA-Public Use
  Company Number: AU-JNJFOC-20111102590

PATIENT
  Sex: Male
  Weight: 76 kg

DRUGS (26)
  1. ACETAMINOPHEN [Concomitant]
     Indication: BACK PAIN
     Route: 065
     Dates: start: 20111102, end: 20111103
  2. FENTANYL [Concomitant]
     Route: 065
     Dates: start: 20111223, end: 20111223
  3. ABIRATERONE ACETATE [Suspect]
     Indication: PROSTATE CANCER METASTATIC
     Route: 048
     Dates: start: 20111017, end: 20111113
  4. PREDNISOLONE [Suspect]
     Indication: PROSTATE CANCER METASTATIC
     Route: 048
     Dates: start: 20111017
  5. PANADOL OSTEO [Concomitant]
     Indication: PAIN
     Route: 065
     Dates: start: 20111222, end: 20111227
  6. OXYCODONE HCL [Concomitant]
     Indication: PAIN
     Route: 065
     Dates: start: 20111222, end: 20111227
  7. ABIRATERONE ACETATE [Suspect]
     Route: 048
     Dates: start: 20111121
  8. OXYCONTIN [Suspect]
     Indication: PAIN
     Route: 065
     Dates: start: 20120104
  9. CEFTRIAXONE [Concomitant]
     Indication: BACK PAIN
     Route: 065
     Dates: start: 20111102, end: 20111103
  10. METOCLOPRAMIDE [Concomitant]
     Route: 065
     Dates: start: 20111209, end: 20111212
  11. COLOXYL AND SENNA [Concomitant]
     Route: 065
     Dates: start: 20111209, end: 20111212
  12. ABIRATERONE ACETATE [Suspect]
     Route: 048
     Dates: start: 20111214
  13. ONDANSETRON [Concomitant]
     Route: 065
     Dates: start: 20111209, end: 20111209
  14. METOCLOPRAMIDE [Concomitant]
     Indication: VOMITING
     Route: 065
     Dates: start: 20111222, end: 20111223
  15. OMEPRAZOLE [Concomitant]
     Indication: VOMITING
     Route: 065
     Dates: start: 20111223, end: 20111227
  16. OMEPRAZOLE [Concomitant]
     Route: 065
     Dates: start: 20111209, end: 20111212
  17. CEPHALEXIN [Concomitant]
     Indication: VOMITING
     Route: 065
     Dates: start: 20111224, end: 20111227
  18. COLOXYL AND SENNA [Concomitant]
     Indication: CONSTIPATION
     Route: 065
     Dates: start: 20111223, end: 20111227
  19. MOVIPREP [Concomitant]
     Indication: CONSTIPATION
     Route: 065
     Dates: start: 20111222, end: 20111222
  20. ONDANSETRON [Concomitant]
     Indication: VOMITING
     Route: 065
     Dates: start: 20111226, end: 20111227
  21. ONDANSETRON [Concomitant]
     Route: 065
     Dates: start: 20111222, end: 20111223
  22. METOCLOPRAMIDE [Concomitant]
     Route: 065
     Dates: start: 20111223, end: 20111227
  23. FENTANYL [Concomitant]
     Indication: PAIN
     Route: 065
     Dates: start: 20111224, end: 20111227
  24. NORMAL SALINE SOLUTION [Concomitant]
     Indication: VOMITING
     Route: 065
     Dates: start: 20111222, end: 20111222
  25. AMPICILLIN [Concomitant]
     Indication: BACK PAIN
     Route: 065
     Dates: start: 20111102, end: 20111103
  26. GLYCERINE [Concomitant]
     Indication: CONSTIPATION
     Route: 065
     Dates: start: 20111210, end: 20111210

REACTIONS (4)
  - HYPERKALAEMIA [None]
  - PROSTATE CANCER METASTATIC [None]
  - VOMITING [None]
  - BACK PAIN [None]
